FAERS Safety Report 12765386 (Version 3)
Quarter: 2016Q4

REPORT INFORMATION
  Report Type: Report from Study
  Country: IT (occurrence: IT)
  Receive Date: 20160921
  Receipt Date: 20161018
  Transmission Date: 20170207
  Serious: Yes (Other)
  Sender: FDA-Public Use
  Company Number: IT-BRISTOL-MYERS SQUIBB COMPANY-BMS-2016-077230

PATIENT
  Age: 53 Year
  Sex: Female

DRUGS (1)
  1. NIVOLUMAB [Suspect]
     Active Substance: NIVOLUMAB
     Indication: RENAL CELL CARCINOMA
     Dosage: UNK UNK, Q2WK
     Route: 065

REACTIONS (8)
  - Tumour pain [Unknown]
  - Asthenia [Unknown]
  - Peptic ulcer [Unknown]
  - Depressed mood [Unknown]
  - Apathy [Unknown]
  - Cutaneous symptom [Unknown]
  - Constipation [Unknown]
  - Anhedonia [Unknown]
